FAERS Safety Report 5234937-0 (Version None)
Quarter: 2007Q1

REPORT INFORMATION
  Report Type: 
  Country: None (occurrence: None)
  Receive Date: 20070209
  Receipt Date: 20070201
  Transmission Date: 20070707
  Serious: Yes (Hospitalization)
  Sender: FDA-Public Use
  Company Number: GB-PFIZER INC-2007009501

PATIENT
  Age: 77 Year

DRUGS (10)
  1. ATORVASTATIN [Suspect]
     Route: 048
  2. FUSIDATE SODIUM [Interacting]
     Indication: HIP ARTHROPLASTY
     Route: 048
  3. FUSIDATE SODIUM [Interacting]
     Indication: WOUND INFECTION
  4. BENDROFLUMETHIAZIDE [Concomitant]
     Dosage: DAILY DOSE:2.5MG-FREQ:DAILY
     Route: 048
  5. DOXYCYCLINE [Concomitant]
     Route: 048
  6. FLUCLOXACILLIN [Concomitant]
     Indication: HIP ARTHROPLASTY
     Route: 048
  7. FLUCLOXACILLIN [Concomitant]
     Indication: WOUND INFECTION
  8. QUININE SULFATE [Concomitant]
     Dosage: DAILY DOSE:300MG-FREQ:DAILY
     Route: 048
  9. VALSARTAN [Concomitant]
     Indication: HYPERTENSION
     Dosage: DAILY DOSE:80MG-FREQ:DAILY
     Route: 048
  10. WARFARIN SODIUM [Concomitant]
     Indication: ATRIAL FIBRILLATION
     Route: 048

REACTIONS (8)
  - COUGH [None]
  - DRUG INTERACTION [None]
  - INSOMNIA [None]
  - LIVER FUNCTION TEST ABNORMAL [None]
  - MYALGIA [None]
  - MYOPATHY [None]
  - RENAL FAILURE ACUTE [None]
  - RHABDOMYOLYSIS [None]
